FAERS Safety Report 25105334 (Version 1)
Quarter: 2025Q1

REPORT INFORMATION
  Report Type: Report from Study
  Country: US (occurrence: US)
  Receive Date: 20250321
  Receipt Date: 20250321
  Transmission Date: 20250409
  Serious: Yes (Hospitalization)
  Sender: BAYER HEALTHCARE PHARMACEUTICALS INC.
  Company Number: US-BAYER-2025A036360

PATIENT
  Age: 63 Year
  Sex: Male
  Weight: 149.57 kg

DRUGS (19)
  1. ADEMPAS [Suspect]
     Active Substance: RIOCIGUAT
     Indication: Pulmonary arterial hypertension
     Dates: start: 20240628
  2. ADEMPAS [Suspect]
     Active Substance: RIOCIGUAT
     Indication: Pulmonary arterial hypertension
     Dosage: 2.5 MG, TID
     Route: 048
  3. SPIRONOLACTONE [Concomitant]
     Active Substance: SPIRONOLACTONE
  4. ACETAMINOPHEN [Concomitant]
     Active Substance: ACETAMINOPHEN
  5. AMMONIUM LACTATE [Concomitant]
     Active Substance: AMMONIUM LACTATE
  6. LACTULOSE [Concomitant]
     Active Substance: LACTULOSE
  7. VITAMINS [Concomitant]
     Active Substance: VITAMINS
  8. TRAZODONE HCL [Concomitant]
     Active Substance: TRAZODONE HYDROCHLORIDE
  9. BREO ELLIPTA [Concomitant]
     Active Substance: FLUTICASONE FUROATE\VILANTEROL TRIFENATATE
  10. ALBUTEROL SULFATE [Concomitant]
     Active Substance: ALBUTEROL SULFATE
  11. METOLAZONE [Concomitant]
     Active Substance: METOLAZONE
  12. DOXYCYCLINE HYCLATE [Concomitant]
     Active Substance: DOXYCYCLINE HYCLATE
  13. ALLOPURINOL [Concomitant]
     Active Substance: ALLOPURINOL
  14. OPSUMIT [Concomitant]
     Active Substance: MACITENTAN
  15. VITAMIN D3 [Concomitant]
     Active Substance: CHOLECALCIFEROL
  16. NYSTATIN [Concomitant]
     Active Substance: NYSTATIN
  17. FARXIGA [Concomitant]
     Active Substance: DAPAGLIFLOZIN PROPANEDIOL
  18. TORSEMIDE [Concomitant]
     Active Substance: TORSEMIDE
  19. LORATADINE [Concomitant]
     Active Substance: LORATADINE

REACTIONS (4)
  - Anaemia [None]
  - Dyspnoea [None]
  - Fatigue [None]
  - Adverse drug reaction [None]

NARRATIVE: CASE EVENT DATE: 20250310
